FAERS Safety Report 9166784 (Version 1)
Quarter: 2012Q4

REPORT INFORMATION
  Report Type: 
  Country: US (occurrence: US)
  Receive Date: 20121114
  Receipt Date: 20121114
  Transmission Date: 20130627
  Serious: Yes (Other)
  Sender: FDA-Public Use
  Company Number: US-RB-043775-12

PATIENT
  Age: 39 Year
  Sex: Female

DRUGS (7)
  1. SUBOXONE FILM [Suspect]
     Indication: DRUG DEPENDENCE
     Dosage: Suboxone film-prescribed with 24 mg daily/took only 8-16 mg daily
     Route: 060
     Dates: start: 201103, end: 201208
  2. EFFEXOR [Concomitant]
     Indication: BIPOLAR I DISORDER
     Dosage: Dosage details unknown
     Route: 065
  3. LAMICTAL [Concomitant]
     Indication: BIPOLAR I DISORDER
     Dosage: Unknown dosage details
     Route: 065
  4. XANAX [Concomitant]
     Indication: ANXIETY
     Dosage: Unknown dosage details
     Route: 065
  5. AMBIEN [Concomitant]
     Indication: INSOMNIA
     Dosage: Unknown dosage details
     Route: 065
  6. VISTARIL [Concomitant]
     Indication: BIPOLAR I DISORDER
     Dosage: Unknown dosage details
     Route: 065
  7. LYRICA [Concomitant]
     Indication: BIPOLAR I DISORDER
     Dosage: Unknown dosage details
     Route: 065

REACTIONS (7)
  - Sarcoidosis [Not Recovered/Not Resolved]
  - Systemic lupus erythematosus [Not Recovered/Not Resolved]
  - Underdose [Recovered/Resolved]
  - Arthralgia [Not Recovered/Not Resolved]
  - Urinary incontinence [Recovered/Resolved]
  - Activities of daily living impaired [Not Recovered/Not Resolved]
  - Pain [Unknown]
